FAERS Safety Report 9159570 (Version 2)
Quarter: 2013Q1

REPORT INFORMATION
  Report Type: Spontaneous
  Country: CA (occurrence: None)
  Receive Date: 20130222
  Receipt Date: 20130305
  Transmission Date: 20140127
  Serious: Yes (Other)
  Sender: FDA-Public Use
  Company Number: 2013-0746

PATIENT
  Age: 52 Year
  Sex: Female

DRUGS (1)
  1. LANREOTIDE [Suspect]
     Indication: NEUROENDOCRINE TUMOUR
     Dosage: 120 MG (120 MG, 1 IN 28 D), SUBCUTANEOUS??
     Route: 058
     Dates: start: 20090817, end: 201211

REACTIONS (4)
  - Neoplasm malignant [None]
  - Delirium [None]
  - Gastrointestinal haemorrhage [None]
  - Cholelithiasis [None]
